FAERS Safety Report 7286492-1 (Version None)
Quarter: 2011Q1

REPORT INFORMATION
  Report Type: 
  Country: None (occurrence: None)
  Receive Date: 20110131
  Receipt Date: 20110125
  Transmission Date: 20110831
  Serious: Yes (Hospitalization, Other)
  Sender: FDA-Public Use
  Company Number: 2008-183474-NL

PATIENT
  Age: 29 Year
  Sex: Female
  Weight: 74.8 kg

DRUGS (13)
  1. CEPHALEXIN [Concomitant]
  2. MEPERIDINE HCL [Concomitant]
  3. PROMETHAZINE [Concomitant]
  4. HYDROCODONE BITARTRATE + ACETAMINOPHEN [Concomitant]
  5. LORTAB [Concomitant]
  6. CALCIUM [Concomitant]
  7. CLA [Concomitant]
  8. NUVARING [Suspect]
     Indication: PRODUCT USED FOR UNKNOWN INDICATION
     Dosage: 1 DF, QM, VAG
     Route: 067
     Dates: start: 20050429, end: 20080106
  9. MULTI-VITAMIN [Concomitant]
  10. DIAZEPAM [Concomitant]
  11. ADIPEX-P [Suspect]
     Indication: WEIGHT CONTROL
  12. ADVIL LIQUI-GELS [Concomitant]
  13. HYDROXYCUT [Concomitant]

REACTIONS (25)
  - DIZZINESS [None]
  - UPPER RESPIRATORY TRACT INFECTION [None]
  - HYPOTENSION [None]
  - DEPRESSION [None]
  - THROMBOCYTOSIS [None]
  - INTERNATIONAL NORMALISED RATIO DECREASED [None]
  - INCREASED TENDENCY TO BRUISE [None]
  - HEADACHE [None]
  - NAUSEA [None]
  - TACHYCARDIA [None]
  - HYPOXIA [None]
  - DEEP VEIN THROMBOSIS [None]
  - BRONCHITIS [None]
  - RIGHT ATRIAL DILATATION [None]
  - INTERNATIONAL NORMALISED RATIO INCREASED [None]
  - SINUS ARRHYTHMIA [None]
  - ANXIETY [None]
  - INJECTION SITE PAIN [None]
  - LEUKOCYTOSIS [None]
  - ANTIPHOSPHOLIPID SYNDROME [None]
  - VOMITING [None]
  - MITRAL VALVE PROLAPSE [None]
  - PULMONARY EMBOLISM [None]
  - DIASTOLIC DYSFUNCTION [None]
  - LIPODYSTROPHY ACQUIRED [None]
